FAERS Safety Report 21312735 (Version 1)
Quarter: 2022Q3

REPORT INFORMATION
  Report Type: Spontaneous
  Country: US (occurrence: None)
  Receive Date: 20220908
  Receipt Date: 20220908
  Transmission Date: 20221026
  Serious: No
  Sender: FDA-Public Use
  Company Number: None

PATIENT
  Age: 64 Year
  Sex: Female

DRUGS (1)
  1. METHOTREXATE [Suspect]
     Active Substance: METHOTREXATE

REACTIONS (4)
  - Product administration error [None]
  - Wrong technique in product usage process [None]
  - Incorrect dose administered by device [None]
  - Injection site extravasation [None]

NARRATIVE: CASE EVENT DATE: 20220908
